FAERS Safety Report 14540297 (Version 6)
Quarter: 2018Q1

REPORT INFORMATION
  Report Type: Spontaneous
  Country: RU (occurrence: RU)
  Receive Date: 20180216
  Receipt Date: 20180322
  Transmission Date: 20180509
  Serious: Yes (Death, Other)
  Sender: FDA-Public Use
  Company Number: RU-ABBVIE-18S-251-2260271-00

PATIENT
  Age: 19 Year
  Sex: Female
  Weight: 72 kg

DRUGS (10)
  1. VERO PIPECURONIUM [Concomitant]
     Indication: PROPHYLAXIS
  2. SEVORANE [Suspect]
     Active Substance: SEVOFLURANE
     Indication: GENERAL ANAESTHESIA
     Dosage: 2-5 VOL.%, 10-15 ML
     Route: 055
     Dates: start: 20180214
  3. ARDUAN [Concomitant]
     Active Substance: PIPECURONIUM BROMIDE
     Indication: ENDOTRACHEAL INTUBATION
  4. LYSTHENON [Interacting]
     Active Substance: SUCCINYLCHOLINE CHLORIDE
     Indication: NEUROMUSCULAR BLOCKING THERAPY
     Route: 042
     Dates: start: 20180214
  5. VERO PIPECURONIUM [Concomitant]
     Indication: ENDOTRACHEAL INTUBATION
     Route: 042
     Dates: start: 20180214, end: 20180214
  6. PROPOFOL. [Concomitant]
     Active Substance: PROPOFOL
     Indication: INDUCTION OF ANAESTHESIA
     Route: 051
     Dates: start: 20180214
  7. ATROPINE. [Concomitant]
     Active Substance: ATROPINE
     Indication: PREMEDICATION
     Route: 051
     Dates: start: 20180214
  8. ARDUAN [Concomitant]
     Active Substance: PIPECURONIUM BROMIDE
     Indication: SURGERY
     Route: 051
     Dates: start: 20180214
  9. FENTANYL. [Concomitant]
     Active Substance: FENTANYL
     Indication: INDUCTION AND MAINTENANCE OF ANAESTHESIA
  10. FENTANYL. [Concomitant]
     Active Substance: FENTANYL
     Indication: ANALGESIC THERAPY
     Route: 051
     Dates: start: 20180214

REACTIONS (6)
  - Hyperthermia malignant [Fatal]
  - Pulmonary oedema [Fatal]
  - Drug interaction [Unknown]
  - Cardiac arrest [Fatal]
  - Cardiac failure acute [Fatal]
  - Brain oedema [Fatal]

NARRATIVE: CASE EVENT DATE: 20180214
